FAERS Safety Report 15693544 (Version 2)
Quarter: 2022Q4

REPORT INFORMATION
  Report Type: Spontaneous
  Country: IT (occurrence: NL)
  Receive Date: 20181206
  Receipt Date: 20221217
  Transmission Date: 20230113
  Serious: Yes (Hospitalization, Congenital Anomaly, Other)
  Sender: FDA-Public Use
  Company Number: NL-AUROBINDO-AUR-APL-2018-059194

PATIENT
  Sex: Male

DRUGS (3)
  1. ACETAMINOPHEN [Suspect]
     Active Substance: ACETAMINOPHEN
     Indication: Back pain
     Dosage: 2000 MILLIGRAM, DAILY (500 MG, QID)
     Route: 064
  2. FERROUS SULFATE [Suspect]
     Active Substance: FERROUS SULFATE
     Indication: Product used for unknown indication
     Dosage: UNK
     Route: 064
  3. FOLIC ACID [Suspect]
     Active Substance: FOLIC ACID
     Indication: Product used for unknown indication
     Dosage: UNK
     Route: 064

REACTIONS (8)
  - Live birth [Unknown]
  - Premature baby [Recovered/Resolved]
  - Right ventricular hypertrophy [Recovered/Resolved]
  - Neonatal respiratory distress [Recovered/Resolved]
  - Pulmonary hypertension [Recovered/Resolved]
  - Foetal exposure during pregnancy [Unknown]
  - Ductus arteriosus stenosis foetal [Unknown]
  - Low birth weight baby [Unknown]
